FAERS Safety Report 6927711-8 (Version None)
Quarter: 2010Q3

REPORT INFORMATION
  Report Type: 
  Country: None (occurrence: None)
  Receive Date: 20100817
  Receipt Date: 20100811
  Transmission Date: 20110219
  Serious: Yes (Life-Threatening, Hospitalization)
  Sender: FDA-Public Use
  Company Number: PHHY2010US53294

PATIENT
  Sex: Female

DRUGS (6)
  1. RECLAST [Suspect]
     Dosage: 5 MG, ONCE YEARLY
     Route: 042
  2. COMBIVENT [Concomitant]
     Dosage: UNK
  3. TOPROL-XL [Concomitant]
  4. VERAPAMIL HCL [Concomitant]
  5. COUMADIN [Concomitant]
  6. NORVASC [Concomitant]

REACTIONS (9)
  - ANAPHYLACTIC SHOCK [None]
  - BLOOD POTASSIUM INCREASED [None]
  - BLOOD SODIUM DECREASED [None]
  - DIALYSIS [None]
  - GLOMERULAR FILTRATION RATE DECREASED [None]
  - HYPERSENSITIVITY [None]
  - ISCHAEMIC HEPATITIS [None]
  - RENAL FAILURE ACUTE [None]
  - UNRESPONSIVE TO STIMULI [None]
